FAERS Safety Report 22143295 (Version 2)
Quarter: 2023Q1

REPORT INFORMATION
  Report Type: Spontaneous
  Country: IN (occurrence: IN)
  Receive Date: 20230327
  Receipt Date: 20230330
  Transmission Date: 20230417
  Serious: Yes (Hospitalization, Other)
  Sender: FDA-Public Use
  Company Number: IN-MLMSERVICE-20230316-4167575-1

PATIENT
  Age: 34 Year
  Sex: Male

DRUGS (4)
  1. THYMOCYTE IMMUNE GLOBULIN NOS [Suspect]
     Active Substance: THYMOCYTE IMMUNE GLOBULIN NOS
     Indication: Immunosuppressant drug therapy
     Dosage: UNK
  2. AZATHIOPRINE [Suspect]
     Active Substance: AZATHIOPRINE
     Indication: Immunosuppressant drug therapy
     Dosage: UNK
  3. PREDNISONE [Suspect]
     Active Substance: PREDNISONE
     Indication: Immunosuppressant drug therapy
     Dosage: UNK
  4. CYCLOSPORINE [Suspect]
     Active Substance: CYCLOSPORINE
     Indication: Immunosuppressant drug therapy
     Dosage: LOW DOSE

REACTIONS (2)
  - Abscess fungal [Recovering/Resolving]
  - Brain abscess [Recovering/Resolving]
